FAERS Safety Report 16039177 (Version 5)
Quarter: 2020Q1

REPORT INFORMATION
  Report Type: Spontaneous
  Country: US (occurrence: US)
  Receive Date: 20190306
  Receipt Date: 20200309
  Transmission Date: 20200409
  Serious: No
  Sender: FDA-Public Use
  Company Number: US-PFIZER INC-2019095110

PATIENT
  Age: 49 Year
  Sex: Female
  Weight: 61 kg

DRUGS (2)
  1. XELJANZ XR [Suspect]
     Active Substance: TOFACITINIB CITRATE
     Indication: RHEUMATOID ARTHRITIS
     Dosage: 11 MG, DAILY
     Route: 048
     Dates: start: 20190116
  2. XELJANZ XR [Suspect]
     Active Substance: TOFACITINIB CITRATE
     Dosage: 11 MG, UNK
     Dates: start: 20200304, end: 20200304

REACTIONS (3)
  - Headache [Unknown]
  - Nasopharyngitis [Unknown]
  - Gastric hypermotility [Unknown]

NARRATIVE: CASE EVENT DATE: 2019
